FAERS Safety Report 5002252-6 (Version None)
Quarter: 2006Q2

REPORT INFORMATION
  Report Type: 
  Country: None (occurrence: None)
  Receive Date: 20060511
  Receipt Date: 20060511
  Transmission Date: 20061013
  Serious: No
  Sender: FDA-Public Use
  Company Number: None

PATIENT
  Age: 55 Year
  Sex: Male
  Weight: 127 kg

DRUGS (1)
  1. TRASYLOL [Suspect]
     Indication: MITRAL VALVE INCOMPETENCE
     Dosage: B PROTOCOL
     Dates: start: 20060503

REACTIONS (1)
  - BLOOD CREATININE INCREASED [None]
